FAERS Safety Report 8508744-7 (Version None)
Quarter: 2012Q3

REPORT INFORMATION
  Report Type: 
  Country: None (occurrence: None)
  Receive Date: 20120713
  Receipt Date: 20120710
  Transmission Date: 20120928
  Serious: No
  Sender: FDA-Public Use
  Company Number: US-PFIZER INC-2012150533

PATIENT
  Sex: Male
  Weight: 87.3 kg

DRUGS (18)
  1. INLYTA [Suspect]
     Indication: RENAL CELL CARCINOMA
  2. PANTOPRAZOLE [Concomitant]
     Indication: BLOOD PRESSURE ABNORMAL
     Dosage: 40 MG, DAILY (1 TAB BY MOUTH EVERY DAY)
     Route: 048
  3. COMBIVENT [Concomitant]
     Dosage: 18-103 MCG/ACT, 1-2 PUFFS Q 4-6 HRS PRN
  4. COREG [Concomitant]
     Dosage: UNK
  5. INLYTA [Suspect]
     Indication: RENAL CANCER
     Dosage: 5 MG, 2X/DAY
     Route: 048
     Dates: start: 20120615
  6. WELCHOL [Concomitant]
     Dosage: UNK
  7. BIAXIN [Concomitant]
     Dosage: 500 MG, 2X/DAY (BID)
  8. HYDROCODONE BITARTRATE + ACETAMINOPHEN [Concomitant]
     Dosage: 5-325 MG TABS (ONE EVEY 4 HRS PRN)
  9. PROTONIX [Concomitant]
     Dosage: 40 MG, UNK (40 MG 1 TABBY MOUTH EVERY DAILY)
     Route: 048
  10. METOPROLOL TARTRATE [Concomitant]
     Indication: CARDIAC DISORDER
     Dosage: 12.5 MG, 2X/DAY
  11. METOPROLOL TARTRATE [Concomitant]
     Dosage: 25 MG, 2X/DAY (TAKE 1/2 TAKE PO BID)
     Route: 048
  12. SINGULAIR [Concomitant]
     Dosage: 10 MG, 2X/DAY (1 PO QD)
     Route: 048
  13. SPIRIVA [Concomitant]
     Dosage: UNK, DAILY
  14. ACETYLSALICYLIC ACID [Concomitant]
     Dosage: 81 MG, 1 DAILY
  15. PANTOPRAZOLE [Concomitant]
     Indication: CARDIAC DISORDER
  16. DIFLUCAN [Concomitant]
     Dosage: 100 MG, UNK
  17. AMOXICILLIN [Concomitant]
     Dosage: 500 MG, 2X/DAY (BID)
  18. DIOVAN HCT [Concomitant]
     Indication: BLOOD PRESSURE ABNORMAL
     Dosage: UNK, 1X/DAY 160/12.5 MG, DAILY (ONE TABLET DAILY)

REACTIONS (1)
  - DYSPHONIA [None]
